FAERS Safety Report 12971212 (Version 2)
Quarter: 2016Q4

REPORT INFORMATION
  Report Type: Spontaneous
  Country: US (occurrence: US)
  Receive Date: 20161123
  Receipt Date: 20161128
  Transmission Date: 20170207
  Serious: No
  Sender: FDA-Public Use
  Company Number: US-JAZZ-2016-US-019279

PATIENT
  Sex: Female

DRUGS (15)
  1. FLONASE                            /00908302/ [Concomitant]
     Active Substance: MOMETASONE FUROATE
  2. FLUVOXAMINE [Concomitant]
     Active Substance: FLUVOXAMINE
  3. VITAMIN D                          /00107901/ [Concomitant]
     Active Substance: ERGOCALCIFEROL
  4. PREVACID [Concomitant]
     Active Substance: LANSOPRAZOLE
  5. CLARAVIS [Concomitant]
     Active Substance: ISOTRETINOIN
  6. CLONAZEPAM. [Concomitant]
     Active Substance: CLONAZEPAM
  7. SINGULAIR [Concomitant]
     Active Substance: MONTELUKAST SODIUM
  8. KEFLEX [Concomitant]
     Active Substance: CEPHALEXIN
  9. PROPRANOLOL [Concomitant]
     Active Substance: PROPRANOLOL\PROPRANOLOL HYDROCHLORIDE
  10. XYREM [Suspect]
     Active Substance: SODIUM OXYBATE
     Dosage: 3 G, BID
     Route: 048
     Dates: start: 2012
  11. CONCERTA [Suspect]
     Active Substance: METHYLPHENIDATE HYDROCHLORIDE
     Indication: PRODUCT USED FOR UNKNOWN INDICATION
  12. ATROVENT [Concomitant]
     Active Substance: IPRATROPIUM BROMIDE
  13. XYREM [Suspect]
     Active Substance: SODIUM OXYBATE
     Indication: NARCOLEPSY
     Dosage: 2.25 G, BID
     Route: 048
     Dates: start: 201211, end: 2012
  14. LAMICTAL [Concomitant]
     Active Substance: LAMOTRIGINE
  15. ZYVOX [Concomitant]
     Active Substance: LINEZOLID

REACTIONS (4)
  - Unevaluable event [Unknown]
  - Fatigue [Not Recovered/Not Resolved]
  - Tremor [Unknown]
  - Anxiety [Unknown]
